FAERS Safety Report 20825703 (Version 2)
Quarter: 2025Q2

REPORT INFORMATION
  Report Type: Spontaneous
  Country: ES (occurrence: ES)
  Receive Date: 20220513
  Receipt Date: 20250626
  Transmission Date: 20250717
  Serious: Yes (Hospitalization, Other)
  Sender: MYLAN
  Company Number: None

PATIENT
  Age: 16 Year
  Sex: Female

DRUGS (12)
  1. ACETAMINOPHEN [Interacting]
     Active Substance: ACETAMINOPHEN
     Indication: Product used for unknown indication
     Dates: start: 20220311, end: 20220311
  2. ACETAMINOPHEN [Interacting]
     Active Substance: ACETAMINOPHEN
     Route: 048
     Dates: start: 20220311, end: 20220311
  3. ACETAMINOPHEN [Interacting]
     Active Substance: ACETAMINOPHEN
     Route: 048
     Dates: start: 20220311, end: 20220311
  4. ACETAMINOPHEN [Interacting]
     Active Substance: ACETAMINOPHEN
     Dates: start: 20220311, end: 20220311
  5. IBUPROFEN [Interacting]
     Active Substance: IBUPROFEN
     Indication: Product used for unknown indication
     Dates: start: 20220311, end: 20220311
  6. IBUPROFEN [Interacting]
     Active Substance: IBUPROFEN
     Route: 048
     Dates: start: 20220311, end: 20220311
  7. IBUPROFEN [Interacting]
     Active Substance: IBUPROFEN
     Route: 048
     Dates: start: 20220311, end: 20220311
  8. IBUPROFEN [Interacting]
     Active Substance: IBUPROFEN
     Dates: start: 20220311, end: 20220311
  9. LORAZEPAM [Interacting]
     Active Substance: LORAZEPAM
     Indication: Product used for unknown indication
     Dates: start: 20220311, end: 20220311
  10. LORAZEPAM [Interacting]
     Active Substance: LORAZEPAM
     Route: 048
     Dates: start: 20220311, end: 20220311
  11. LORAZEPAM [Interacting]
     Active Substance: LORAZEPAM
     Route: 048
     Dates: start: 20220311, end: 20220311
  12. LORAZEPAM [Interacting]
     Active Substance: LORAZEPAM
     Dates: start: 20220311, end: 20220311

REACTIONS (5)
  - Hypertransaminasaemia [Recovered/Resolved]
  - Rhabdomyolysis [Recovered/Resolved]
  - Suicide attempt [Unknown]
  - Intentional overdose [Recovered/Resolved]
  - Drug interaction [Unknown]

NARRATIVE: CASE EVENT DATE: 20220311
